FAERS Safety Report 5998152-5 (Version None)
Quarter: 2008Q4

REPORT INFORMATION
  Report Type: 
  Country: None (occurrence: None)
  Receive Date: 20081213
  Receipt Date: 20080623
  Transmission Date: 20090506
  Serious: No
  Sender: FDA-Public Use
  Company Number: US-AMGEN-KDL289549

PATIENT
  Sex: Female

DRUGS (1)
  1. ENBREL [Suspect]
     Indication: SCLERODERMA
     Route: 058
     Dates: start: 20050305

REACTIONS (1)
  - UPPER RESPIRATORY TRACT INFECTION [None]
